FAERS Safety Report 11193587 (Version 2)
Quarter: 2015Q3

REPORT INFORMATION
  Report Type: Spontaneous
  Country: GB (occurrence: GB)
  Receive Date: 20150616
  Receipt Date: 20150701
  Transmission Date: 20151125
  Serious: Yes (Other)
  Sender: FDA-Public Use
  Company Number: PHHY2015GB067060

PATIENT
  Age: 37 Year
  Sex: Female

DRUGS (5)
  1. CITALOPRAM [Suspect]
     Active Substance: CITALOPRAM HYDROBROMIDE
     Dosage: INCREASE TO 40MG IN MID FEBRUARY.
     Route: 048
     Dates: start: 201502
  2. AMLODIPINE [Concomitant]
     Active Substance: AMLODIPINE BESYLATE
     Indication: PRODUCT USED FOR UNKNOWN INDICATION
     Route: 065
  3. LANSOPRAZOL [Concomitant]
     Active Substance: LANSOPRAZOLE
     Indication: PRODUCT USED FOR UNKNOWN INDICATION
     Route: 065
  4. CITALOPRAM [Suspect]
     Active Substance: CITALOPRAM HYDROBROMIDE
     Indication: MENSTRUATION IRREGULAR
     Dosage: 40 UNK, UNK
     Route: 048
     Dates: start: 20150122, end: 201502
  5. AMLODIPINE [Concomitant]
     Active Substance: AMLODIPINE BESYLATE
     Route: 065

REACTIONS (3)
  - Menstruation irregular [Not Recovered/Not Resolved]
  - Hypomenorrhoea [Unknown]
  - Metrorrhagia [Unknown]

NARRATIVE: CASE EVENT DATE: 20150306
